FAERS Safety Report 6259257-7 (Version None)
Quarter: 2009Q3

REPORT INFORMATION
  Report Type: 
  Country: None (occurrence: None)
  Receive Date: 20090702
  Receipt Date: 20090626
  Transmission Date: 20100115
  Serious: Yes (Hospitalization)
  Sender: FDA-Public Use
  Company Number: 1000007073

PATIENT
  Age: 48 Year
  Sex: Female

DRUGS (5)
  1. THYROID TAB [Suspect]
     Indication: HYPOTHYROIDISM
     Dosage: 120 MG (120 MG, 1 IN 1 D), SUBLINGUAL
     Route: 060
     Dates: start: 20020101
  2. NAPROSYN [Concomitant]
  3. PREVACID [Concomitant]
  4. MULTI-VITAMINS [Concomitant]
  5. CALCIUM [Concomitant]

REACTIONS (7)
  - BREAST TENDERNESS [None]
  - FACIAL PARESIS [None]
  - FATIGUE [None]
  - HYPOAESTHESIA [None]
  - MENSTRUATION IRREGULAR [None]
  - MUSCLE SPASMS [None]
  - SWELLING [None]
